FAERS Safety Report 5586157-8 (Version None)
Quarter: 2008Q1

REPORT INFORMATION
  Report Type: 
  Country: None (occurrence: None)
  Receive Date: 20080104
  Receipt Date: 20071221
  Transmission Date: 20080703
  Serious: Yes (Hospitalization)
  Sender: FDA-Public Use
  Company Number: 2007BI025146

PATIENT
  Age: 36 Year
  Sex: Male

DRUGS (2)
  1. AVONEX [Suspect]
     Indication: RELAPSING-REMITTING MULTIPLE SCLEROSIS
     Dosage: 15 UG; QW; IM, 30 UG; QW; IM
     Route: 030
     Dates: start: 20070604, end: 20070617
  2. AVONEX [Suspect]
     Indication: RELAPSING-REMITTING MULTIPLE SCLEROSIS
     Dosage: 15 UG; QW; IM, 30 UG; QW; IM
     Route: 030
     Dates: start: 20070618

REACTIONS (5)
  - DENTAL CARIES [None]
  - DUODENAL ULCER [None]
  - GASTRIC ULCER [None]
  - HAEMOGLOBIN DECREASED [None]
  - PYREXIA [None]
